FAERS Safety Report 8932780 (Version 1)
Quarter: 2012Q4

REPORT INFORMATION
  Report Type: 
  Country: CN (occurrence: CN)
  Receive Date: 20121129
  Receipt Date: 20121129
  Transmission Date: 20130627
  Serious: Yes (Hospitalization, Other)
  Sender: FDA-Public Use
  Company Number: CN-BAYER-2012-122052

PATIENT
  Age: 47 Year
  Sex: Male

DRUGS (1)
  1. NEXAVAR [Suspect]
     Indication: HEPATIC NEOPLASM MALIGNANT
     Dosage: 400 mg, BID
     Dates: start: 20110818, end: 20110901

REACTIONS (15)
  - Erythema [Recovering/Resolving]
  - Skin swelling [None]
  - Rash [Recovering/Resolving]
  - Pruritus [Recovering/Resolving]
  - Pain of skin [Recovering/Resolving]
  - Mental status changes [None]
  - Rash maculo-papular [Recovering/Resolving]
  - Vision blurred [Recovered/Resolved]
  - Eye discharge [Recovering/Resolving]
  - Oral mucosa erosion [Recovering/Resolving]
  - Dysphagia [Recovered/Resolved]
  - Diarrhoea [None]
  - Mouth ulceration [Recovered/Resolved]
  - Skin exfoliation [Recovering/Resolving]
  - Suicidal ideation [Recovered/Resolved]
